FAERS Safety Report 8924033 (Version 1)
Quarter: 2012Q4

REPORT INFORMATION
  Report Type: 
  Country: FR (occurrence: FR)
  Receive Date: 20121126
  Receipt Date: 20121126
  Transmission Date: 20130627
  Serious: Yes (Hospitalization)
  Sender: FDA-Public Use
  Company Number: FR-ASTRAZENECA-2012SE87069

PATIENT
  Age: 66 Year
  Sex: Male

DRUGS (4)
  1. XYLOCAINE NAPHAZOLINE [Suspect]
     Indication: PROPHYLAXIS
     Route: 048
     Dates: start: 20120719, end: 20120719
  2. DIPRIVAN [Suspect]
     Indication: ANAESTHESIA
     Route: 042
     Dates: start: 20120719, end: 20120719
  3. CELOCURINE [Suspect]
     Indication: ANAESTHESIA
     Route: 065
     Dates: start: 20120719, end: 20120719
  4. ULTIVA [Suspect]
     Indication: ANAESTHESIA
     Route: 065
     Dates: start: 20120719, end: 20120719

REACTIONS (3)
  - Hypertension [Recovered/Resolved]
  - Coma [Recovered/Resolved]
  - Clonus [Recovered/Resolved]
